FAERS Safety Report 19012271 (Version 4)
Quarter: 2021Q2

REPORT INFORMATION
  Report Type: Report from Study
  Country: IL (occurrence: IL)
  Receive Date: 20210315
  Receipt Date: 20210602
  Transmission Date: 20210717
  Serious: Yes (Hospitalization)
  Sender: FDA-Public Use
  Company Number: IL-JNJFOC-20210311840

PATIENT
  Age: 38 Year
  Sex: Female

DRUGS (15)
  1. SELEXIPAG [Suspect]
     Active Substance: SELEXIPAG
     Route: 048
     Dates: start: 20210516
  2. CELLCEPT [Concomitant]
     Active Substance: MYCOPHENOLATE MOFETIL\MYCOPHENOLATE MOFETIL HYDROCHLORIDE
  3. PLAQUENIL [HYDROXYCHLOROQUINE PHOSPHATE] [Concomitant]
     Active Substance: HYDROXYCHLOROQUINE DIPHOSPHATE
  4. COUMADIN [Concomitant]
     Active Substance: WARFARIN SODIUM
  5. SELEXIPAG [Suspect]
     Active Substance: SELEXIPAG
     Route: 048
     Dates: start: 20210314
  6. SLIDER [Concomitant]
  7. SELEXIPAG [Suspect]
     Active Substance: SELEXIPAG
     Indication: PULMONARY ARTERIAL HYPERTENSION
     Route: 048
     Dates: start: 20210203
  8. SELEXIPAG [Suspect]
     Active Substance: SELEXIPAG
     Route: 048
     Dates: start: 20210222
  9. SELEXIPAG [Suspect]
     Active Substance: SELEXIPAG
     Route: 048
     Dates: start: 202102
  10. PREDNISONE. [Concomitant]
     Active Substance: PREDNISONE
  11. SELEXIPAG [Suspect]
     Active Substance: SELEXIPAG
     Route: 048
     Dates: start: 20210216
  12. OMEPRADEX [Concomitant]
     Active Substance: OMEPRAZOLE
  13. MACITENTAN [Suspect]
     Active Substance: MACITENTAN
     Indication: PULMONARY ARTERIAL HYPERTENSION
     Route: 048
     Dates: start: 20200801
  14. SELEXIPAG [Suspect]
     Active Substance: SELEXIPAG
     Route: 048
     Dates: start: 2021
  15. SELEXIPAG [Suspect]
     Active Substance: SELEXIPAG
     Route: 048
     Dates: start: 20210304

REACTIONS (14)
  - Headache [Recovering/Resolving]
  - Productive cough [Recovered/Resolved with Sequelae]
  - Cold sweat [Not Recovered/Not Resolved]
  - Myalgia [Not Recovered/Not Resolved]
  - Post procedural infection [Unknown]
  - Diarrhoea [Not Recovered/Not Resolved]
  - Radiation inflammation [Unknown]
  - Nasal congestion [Unknown]
  - Vomiting [Not Recovered/Not Resolved]
  - Oedema peripheral [Recovering/Resolving]
  - Urinary tract infection [Unknown]
  - Nausea [Not Recovered/Not Resolved]
  - Hot flush [Not Recovered/Not Resolved]
  - Erythema [Not Recovered/Not Resolved]

NARRATIVE: CASE EVENT DATE: 2021
